FAERS Safety Report 21119765 (Version 1)
Quarter: 2022Q3

REPORT INFORMATION
  Report Type: Spontaneous
  Country: CN (occurrence: CN)
  Receive Date: 20220722
  Receipt Date: 20220722
  Transmission Date: 20221027
  Serious: Yes (Other)
  Sender: FDA-Public Use
  Company Number: CN-PFIZER INC-PV202200027179

PATIENT
  Age: 49 Year
  Sex: Female
  Weight: 50 kg

DRUGS (4)
  1. CELECOXIB [Suspect]
     Active Substance: CELECOXIB
     Indication: Meniscus injury
     Dosage: 1 CAPSULE, 1X/DAY
     Route: 048
     Dates: start: 20220719, end: 20220719
  2. CELECOXIB [Suspect]
     Active Substance: CELECOXIB
     Indication: Arthralgia
     Dosage: 1 CAPSULE, 1X/DAY
     Route: 048
     Dates: start: 20220719, end: 20220719
  3. HERBALS [Suspect]
     Active Substance: HERBALS
     Indication: Meniscus injury
     Dosage: 5 CAPSULES, 3X/DAY
     Route: 048
     Dates: start: 20220719, end: 20220719
  4. HERBALS [Suspect]
     Active Substance: HERBALS
     Indication: Arthralgia

REACTIONS (2)
  - Pruritus [Recovered/Resolved]
  - Cutaneous symptom [Recovered/Resolved]

NARRATIVE: CASE EVENT DATE: 20220720
